FAERS Safety Report 17651427 (Version 1)
Quarter: 2020Q2

REPORT INFORMATION
  Report Type: Spontaneous
  Country: SE (occurrence: SE)
  Receive Date: 20200409
  Receipt Date: 20200409
  Transmission Date: 20200713
  Serious: Yes (Other)
  Sender: FDA-Public Use
  Company Number: SE-TEVA-2020-SE-1219919

PATIENT
  Age: 71 Year
  Sex: Female
  Weight: 80 kg

DRUGS (7)
  1. VENTOLINE [Concomitant]
     Active Substance: ALBUTEROL
     Dosage: INHALATION?^0,2 MG X 3^
  2. LOSARTAN. [Concomitant]
     Active Substance: LOSARTAN
     Dates: start: 2005
  3. PIOGLITAZONE TEVA PHARMA 45 MG TABLETT [Suspect]
     Active Substance: PIOGLITAZONE
     Dosage: 45 MG
     Route: 065
     Dates: start: 20191108, end: 20200219
  4. PULMICORT TURBUHALER [Concomitant]
     Active Substance: BUDESONIDE
  5. CYANOCOBALAMIN. [Concomitant]
     Active Substance: CYANOCOBALAMIN
     Dates: start: 2010
  6. PIOGLITAZONE TEVA PHARMA 45 MG TABLETT [Suspect]
     Active Substance: PIOGLITAZONE
     Dosage: STARTED WITH 15 MG PER DAY, INCREASED TO 30 MG
     Route: 065
     Dates: start: 20191121, end: 20191207
  7. JANUVIA [Concomitant]
     Active Substance: SITAGLIPTIN PHOSPHATE
     Dates: start: 2005

REACTIONS (21)
  - Pain in extremity [Not Recovered/Not Resolved]
  - Burning sensation [Not Recovered/Not Resolved]
  - Drug ineffective [Recovered/Resolved with Sequelae]
  - Swollen tongue [Recovered/Resolved with Sequelae]
  - Palpitations [Not Recovered/Not Resolved]
  - Weight increased [Recovered/Resolved with Sequelae]
  - Dyspnoea exertional [Recovered/Resolved with Sequelae]
  - Erythema [Recovered/Resolved with Sequelae]
  - Swelling face [Recovered/Resolved with Sequelae]
  - Muscular weakness [Recovered/Resolved with Sequelae]
  - Vision blurred [Recovered/Resolved with Sequelae]
  - Dyspnoea at rest [Recovered/Resolved with Sequelae]
  - Productive cough [Recovered/Resolved with Sequelae]
  - Back pain [Recovered/Resolved with Sequelae]
  - Headache [Not Recovered/Not Resolved]
  - Dysphonia [Recovered/Resolved with Sequelae]
  - Coating in mouth [Recovered/Resolved with Sequelae]
  - Asthma [Not Recovered/Not Resolved]
  - Dizziness [Recovering/Resolving]
  - Increased appetite [Recovered/Resolved with Sequelae]
  - Fatigue [Not Recovered/Not Resolved]

NARRATIVE: CASE EVENT DATE: 202001
